FAERS Safety Report 21298623 (Version 1)
Quarter: 2022Q3

REPORT INFORMATION
  Report Type: Spontaneous
  Country: US (occurrence: None)
  Receive Date: 20220904
  Receipt Date: 20220904
  Transmission Date: 20221027
  Serious: Yes (Disabling)
  Sender: FDA-Public Use
  Company Number: None

PATIENT
  Age: 56 Year
  Sex: Female
  Weight: 51.75 kg

DRUGS (5)
  1. NEURONTIN [Suspect]
     Active Substance: GABAPENTIN
     Indication: Herpes zoster
     Dosage: OTHER QUANTITY : 1 CAPSULE(S);?FREQUENCY : AT BEDTIME;?OTHER ROUTE : BY MOUTH;?
     Route: 048
     Dates: start: 20220311
  2. SYNTHROID [Concomitant]
     Active Substance: LEVOTHYROXINE SODIUM
  3. PROGESTERONE [Concomitant]
     Active Substance: PROGESTERONE
  4. TESTOSTERONE [Concomitant]
     Active Substance: TESTOSTERONE
  5. VITAMINS [Concomitant]
     Active Substance: VITAMINS

REACTIONS (22)
  - Malaise [None]
  - Anxiety [None]
  - Burning sensation [None]
  - Electric shock sensation [None]
  - Hypoaesthesia [None]
  - Paraesthesia [None]
  - Tremor [None]
  - Feeling abnormal [None]
  - Dizziness [None]
  - Impaired driving ability [None]
  - Loss of personal independence in daily activities [None]
  - Bradykinesia [None]
  - Vision blurred [None]
  - Headache [None]
  - Personality change [None]
  - Depression [None]
  - Self-injurious ideation [None]
  - Neuralgia [None]
  - Condition aggravated [None]
  - Migraine [None]
  - Impaired work ability [None]
  - Withdrawal syndrome [None]

NARRATIVE: CASE EVENT DATE: 20220904
